FAERS Safety Report 11310462 (Version 18)
Quarter: 2018Q1

REPORT INFORMATION
  Report Type: Report from Study
  Country: US (occurrence: US)
  Receive Date: 20150724
  Receipt Date: 20180316
  Transmission Date: 20180508
  Serious: Yes (Other)
  Sender: FDA-Public Use
  Company Number: PHEH2015US006576

PATIENT
  Age: 43 Year
  Sex: Female

DRUGS (7)
  1. AFINITOR [Suspect]
     Active Substance: EVEROLIMUS
     Indication: ANGIOMYOLIPOMA
     Dosage: 10 MG, QD
     Route: 048
     Dates: start: 20150327, end: 20151202
  2. AFINITOR [Suspect]
     Active Substance: EVEROLIMUS
     Dosage: 5 MG, UNK
     Route: 048
     Dates: start: 20160120
  3. AFINITOR [Suspect]
     Active Substance: EVEROLIMUS
     Indication: BENIGN RENAL NEOPLASM
     Dosage: 10 MG, QD
     Route: 048
     Dates: start: 20150325
  4. VITAMIN B12 [Concomitant]
     Active Substance: CYANOCOBALAMIN
     Indication: VITAMIN B12 DECREASED
     Route: 065
  5. AFINITOR [Suspect]
     Active Substance: EVEROLIMUS
     Dosage: 5 MG, QD
     Route: 048
     Dates: start: 20151215
  6. AFINITOR [Suspect]
     Active Substance: EVEROLIMUS
     Dosage: 10 MG, UNK
     Route: 048
  7. AFINITOR [Suspect]
     Active Substance: EVEROLIMUS
     Dosage: 5 MG, UNK
     Route: 048

REACTIONS (46)
  - Paranasal sinus hypersecretion [Unknown]
  - Gingival disorder [Unknown]
  - Headache [Not Recovered/Not Resolved]
  - Fatigue [Unknown]
  - Pyrexia [Unknown]
  - Peripheral swelling [Recovering/Resolving]
  - Lipoma [Unknown]
  - Platelet count decreased [Recovered/Resolved]
  - Arthralgia [Unknown]
  - Neutrophil count decreased [Unknown]
  - Insomnia [Unknown]
  - Hot flush [Unknown]
  - Paranasal sinus discomfort [Unknown]
  - Sinus disorder [Unknown]
  - Vitamin D decreased [Unknown]
  - Blood pressure increased [Unknown]
  - Rash [Unknown]
  - Ovarian cyst [Unknown]
  - Cellulitis [Unknown]
  - Weight increased [Unknown]
  - Oropharyngeal pain [Unknown]
  - Palpitations [Unknown]
  - Skin ulcer [Unknown]
  - Menstruation delayed [Unknown]
  - Weight decreased [Recovering/Resolving]
  - Hypersensitivity [Unknown]
  - Epistaxis [Unknown]
  - Dental caries [Unknown]
  - Menstrual disorder [Unknown]
  - Blood triglycerides abnormal [Unknown]
  - Stomatitis [Recovered/Resolved]
  - Platelet count decreased [Unknown]
  - White blood cell count decreased [Recovered/Resolved]
  - Candida infection [Recovered/Resolved]
  - Feeling cold [Unknown]
  - Vitamin B12 decreased [Unknown]
  - Migraine [Not Recovered/Not Resolved]
  - Menopause [Unknown]
  - Lip swelling [Recovered/Resolved]
  - Sinusitis [Unknown]
  - Ovarian neoplasm [Unknown]
  - Pain in extremity [Unknown]
  - Panic attack [Unknown]
  - Cyst [Unknown]
  - Ear infection [Unknown]
  - Drug effect incomplete [Unknown]

NARRATIVE: CASE EVENT DATE: 20150329
